FAERS Safety Report 5632619-4 (Version None)
Quarter: 2008Q1

REPORT INFORMATION
  Report Type: 
  Country: None (occurrence: None)
  Receive Date: 20080220
  Receipt Date: 20080208
  Transmission Date: 20080703
  Serious: Yes (Life-Threatening, Other)
  Sender: FDA-Public Use
  Company Number: JP-PFIZER INC-2008009151

PATIENT
  Sex: Female
  Weight: 38 kg

DRUGS (6)
  1. ZYVOX [Suspect]
     Indication: PNEUMONIA STAPHYLOCOCCAL
     Route: 042
     Dates: start: 20080109, end: 20080121
  2. DALACIN S [Suspect]
     Indication: PNEUMONIA
     Route: 042
     Dates: start: 20080106, end: 20080107
  3. PRODIF [Suspect]
     Indication: FUNGAL INFECTION
     Dosage: DAILY DOSE:504.5MG
     Route: 042
     Dates: start: 20080106, end: 20080106
  4. PRODIF [Suspect]
     Dosage: DAILY DOSE:252.3MG
     Route: 042
     Dates: start: 20080107, end: 20080107
  5. CRAVIT [Concomitant]
     Indication: PNEUMONIA STAPHYLOCOCCAL
     Route: 048
     Dates: start: 20071224, end: 20080105
  6. MEROPEN [Concomitant]
     Indication: PNEUMONIA STAPHYLOCOCCAL
     Route: 042
     Dates: start: 20080106, end: 20080107

REACTIONS (2)
  - DRUG INEFFECTIVE [None]
  - PANCYTOPENIA [None]
